FAERS Safety Report 17989194 (Version 2)
Quarter: 2020Q3

REPORT INFORMATION
  Report Type: Other
  Country: CA (occurrence: CA)
  Receive Date: 20200707
  Receipt Date: 20200925
  Transmission Date: 20201103
  Serious: Yes (Hospitalization)
  Sender: FDA-Public Use
  Company Number: CA-APOTEX-2020AP012824

PATIENT
  Sex: Female

DRUGS (1)
  1. APO? DASATINIB [Suspect]
     Active Substance: DASATINIB
     Indication: PRODUCT USED FOR UNKNOWN INDICATION
     Dosage: 100 MILLIGRAM, QD
     Route: 048

REACTIONS (4)
  - Wound [Unknown]
  - Product dose omission issue [Unknown]
  - Headache [Unknown]
  - Nausea [Unknown]
